FAERS Safety Report 5658463-X (Version None)
Quarter: 2008Q1

REPORT INFORMATION
  Report Type: 
  Country: None (occurrence: None)
  Receive Date: 20080310
  Receipt Date: 20070215
  Transmission Date: 20080703
  Serious: No
  Sender: FDA-Public Use
  Company Number: US-BAYER-200710509BCC

PATIENT
  Age: 68 Year
  Sex: Male
  Weight: 82 kg

DRUGS (4)
  1. ALEVE [Suspect]
     Indication: CONTUSION
     Route: 048
     Dates: start: 20061201, end: 20070201
  2. ZESTORETIC [Concomitant]
  3. ALLOPURINOL [Concomitant]
  4. COLCHICINE [Concomitant]

REACTIONS (2)
  - CONTUSION [None]
  - RASH PRURITIC [None]
